FAERS Safety Report 10167330 (Version 1)
Quarter: 2014Q2

REPORT INFORMATION
  Report Type: Spontaneous
  Country: US (occurrence: None)
  Receive Date: 20140509
  Receipt Date: 20140509
  Transmission Date: 20141212
  Serious: Yes (Life-Threatening)
  Sender: FDA-Public Use
  Company Number: None

PATIENT
  Sex: Female
  Weight: 134.27 kg

DRUGS (2)
  1. AMITRIPTYLINE [Suspect]
     Route: 048
  2. GABAPENTIN [Suspect]
     Route: 048

REACTIONS (2)
  - Somnolence [None]
  - Pharyngeal oedema [None]
